FAERS Safety Report 8967020 (Version 1)
Quarter: 2012Q4

REPORT INFORMATION
  Report Type: Report from Study
  Country: FR (occurrence: FR)
  Receive Date: 20121214
  Receipt Date: 20121214
  Transmission Date: 20130627
  Serious: Yes (Hospitalization)
  Sender: FDA-Public Use
  Company Number: FR-ABBOTT-12P-056-1018594-00

PATIENT
  Sex: Female

DRUGS (2)
  1. KALETRA TABLETS [Suspect]
     Indication: HIV INFECTION
     Route: 048
  2. VIRAMUNE [Concomitant]
     Indication: HIV INFECTION

REACTIONS (1)
  - Premature rupture of membranes [Unknown]
